FAERS Safety Report 7342273-1 (Version None)
Quarter: 2011Q1

REPORT INFORMATION
  Report Type: 
  Country: None (occurrence: None)
  Receive Date: 20110310
  Receipt Date: 20080407
  Transmission Date: 20110831
  Serious: No
  Sender: FDA-Public Use
  Company Number: 2008BI009394

PATIENT
  Sex: Female

DRUGS (6)
  1. DIAZEPAM [Concomitant]
     Indication: PREMEDICATION
  2. TYSABRI [Suspect]
     Indication: MULTIPLE SCLEROSIS
     Route: 042
     Dates: start: 20070514, end: 20071112
  3. TYSABRI [Suspect]
     Route: 042
     Dates: start: 20090615
  4. TYSABRI [Suspect]
     Route: 042
     Dates: start: 20050217, end: 20050217
  5. TYLENOL [Concomitant]
     Indication: PREMEDICATION
  6. BENADRYL [Concomitant]
     Indication: PREMEDICATION

REACTIONS (6)
  - PAIN [None]
  - DEPRESSION [None]
  - SKIN WARM [None]
  - PAIN IN EXTREMITY [None]
  - ARTHRALGIA [None]
  - NEURALGIA [None]
